FAERS Safety Report 4948936-7 (Version None)
Quarter: 2006Q1

REPORT INFORMATION
  Report Type: 
  Country: None (occurrence: None)
  Receive Date: 20060321
  Receipt Date: 20060309
  Transmission Date: 20060701
  Serious: Yes (Other)
  Sender: FDA-Public Use
  Company Number: PHBS2006JP03877

PATIENT

DRUGS (5)
  1. ALEVIATIN [Concomitant]
  2. PRIMIDONE [Concomitant]
     Route: 065
  3. DEPAKENE [Concomitant]
     Route: 065
  4. LIORESAL [Suspect]
     Dosage: 1 DF/DAY
     Route: 065
     Dates: start: 20060203, end: 20060101
  5. LIORESAL [Suspect]
     Dosage: 3 DF/DAY
     Route: 065

REACTIONS (3)
  - C-REACTIVE PROTEIN INCREASED [None]
  - HYPOTHERMIA [None]
  - PLATELET COUNT DECREASED [None]
